FAERS Safety Report 10405548 (Version 1)
Quarter: 2014Q3

REPORT INFORMATION
  Report Type: Spontaneous
  Country: US (occurrence: None)
  Receive Date: 20140822
  Receipt Date: 20140822
  Transmission Date: 20150326
  Serious: Yes (Other)
  Sender: FDA-Public Use
  Company Number: None

PATIENT
  Age: 27 Year
  Sex: Male

DRUGS (1)
  1. STELARA [Suspect]
     Active Substance: USTEKINUMAB
     Dosage: ROUTE: SUBCUTANEOUS 057 STRENGTH: 45   DOSE FORM: INJECTABLE  FREQUENCY: Q12W
     Route: 058
     Dates: start: 20140818

REACTIONS (1)
  - Expired product administered [None]

NARRATIVE: CASE EVENT DATE: 20140818
